FAERS Safety Report 12460540 (Version 1)
Quarter: 2016Q2

REPORT INFORMATION
  Report Type: Not Available
  Country: US (occurrence: US)
  Receive Date: 20160613
  Receipt Date: 20160613
  Transmission Date: 20160815
  Serious: No
  Sender: FDA-Public Use
  Company Number: US-ANIPHARMA-2015-US-001367

PATIENT
  Age: 55 Year
  Sex: Female
  Weight: 63.5 kg

DRUGS (10)
  1. PAMELOR [Concomitant]
     Active Substance: NORTRIPTYLINE HYDROCHLORIDE
     Dosage: ONE 25 MG CAPSULE AT BEDTIME
     Route: 048
  2. MAGNESIUM [Concomitant]
     Active Substance: MAGNESIUM
     Route: 048
  3. FISH OIL- OMEGA-3 FATTY ACIDS [Concomitant]
     Dosage: TWO 1000 MG DAILY
     Route: 048
  4. VALIUM [Concomitant]
     Active Substance: DIAZEPAM
     Dosage: ONE 5 MG TABLET EVERY 6 HOURS AS NEEDED
     Route: 048
  5. MULTIVITAMIN [Concomitant]
     Active Substance: VITAMINS
     Dosage: ONE TABLET DAILY
     Route: 048
  6. RELPAX [Concomitant]
     Active Substance: ELETRIPTAN HYDROBROMIDE
     Dosage: ONE 40 MG TABLET AS NEEDED, REPEAT IN 2 HOURS IF NECESSARY
     Route: 048
  7. LEXAPRO [Concomitant]
     Active Substance: ESCITALOPRAM OXALATE
     Dosage: 30 MG DAILY
     Route: 048
  8. INDERAL LA [Suspect]
     Active Substance: PROPRANOLOL HYDROCHLORIDE
     Dosage: ONE CAPSULE DAILY
     Route: 048
     Dates: start: 2015, end: 201505
  9. ASPIRIN. [Concomitant]
     Active Substance: ASPIRIN
     Dosage: ONE 325 MILLIGRAM TABLET DAILY
     Route: 048
  10. CALCIUM CARBONATE- VITAMIN D [Concomitant]
     Dosage: ONE TABLET DAILY
     Route: 048

REACTIONS (11)
  - Somnolence [Unknown]
  - Fatigue [Unknown]
  - Irritability [Unknown]
  - Snoring [Unknown]
  - Memory impairment [Unknown]
  - Insomnia [Unknown]
  - Initial insomnia [None]
  - Disturbance in attention [Unknown]
  - Middle insomnia [None]
  - Poor quality sleep [Unknown]
  - Sleep apnoea syndrome [Unknown]
